FAERS Safety Report 8478209-X (Version None)
Quarter: 2012Q2

REPORT INFORMATION
  Report Type: 
  Country: None (occurrence: None)
  Receive Date: 20120629
  Receipt Date: 20120618
  Transmission Date: 20120825
  Serious: Yes (Hospitalization, Other)
  Sender: FDA-Public Use
  Company Number: US-ELI_LILLY_AND_COMPANY-US201107003490

PATIENT
  Sex: Female
  Weight: 61.224 kg

DRUGS (11)
  1. FORTEO [Suspect]
     Dosage: 20 UG, QD
     Route: 065
  2. NEXIUM [Concomitant]
     Dosage: UNK
  3. VITAMIN D [Concomitant]
     Dosage: UNK
  4. VERAPAMIL [Concomitant]
     Dosage: UNK
  5. FORTEO [Suspect]
     Dosage: 20 UG, QD
  6. CLONIDINE [Concomitant]
     Dosage: UNK
  7. VITAMIN E [Concomitant]
     Dosage: UNK
  8. GABAPENTIN [Concomitant]
     Dosage: UNK
  9. FORTEO [Suspect]
     Dosage: 20 UG, QD
     Route: 065
  10. FORTEO [Suspect]
     Indication: OSTEOPOROSIS
     Dosage: 20 UG, QD
     Route: 030
     Dates: start: 20110501
  11. LOSARTAN POTASSIUM [Concomitant]
     Dosage: UNK

REACTIONS (21)
  - MUSCLE TWITCHING [None]
  - FEAR [None]
  - VISION BLURRED [None]
  - SYNCOPE [None]
  - MENTAL DISORDER [None]
  - HEAD DISCOMFORT [None]
  - HEADACHE [None]
  - DIARRHOEA [None]
  - DRUG DOSE OMISSION [None]
  - PALPITATIONS [None]
  - COUGH [None]
  - MUSCLE SPASMS [None]
  - INCORRECT ROUTE OF DRUG ADMINISTRATION [None]
  - LOSS OF CONSCIOUSNESS [None]
  - HYPERTENSION [None]
  - PRESYNCOPE [None]
  - CONSTIPATION [None]
  - MEMORY IMPAIRMENT [None]
  - BLOOD SODIUM DECREASED [None]
  - INSOMNIA [None]
  - PAIN [None]
